FAERS Safety Report 16154394 (Version 1)
Quarter: 2019Q2

REPORT INFORMATION
  Report Type: Spontaneous
  Country: DK (occurrence: DK)
  Receive Date: 20190403
  Receipt Date: 20190403
  Transmission Date: 20190711
  Serious: Yes (Hospitalization)
  Sender: FDA-Public Use
  Company Number: DK-BAYER-2019-061826

PATIENT
  Age: 30 Year
  Sex: Female

DRUGS (2)
  1. MIRENA [Suspect]
     Active Substance: LEVONORGESTREL
     Indication: INTRAUTERINE CONTRACEPTION
     Dosage: 20 MCG/24HR, CONT
     Route: 015
     Dates: start: 20140203, end: 20160520
  2. DESOGESTREL [Suspect]
     Active Substance: DESOGESTREL
     Indication: ORAL CONTRACEPTION
     Dosage: 75 ?G, UNK
     Route: 048
     Dates: start: 20081205, end: 2014

REACTIONS (6)
  - Fatigue [Not Recovered/Not Resolved]
  - HER-2 positive breast cancer [Unknown]
  - Mastectomy [Recovered/Resolved]
  - Anxiety [Not Recovered/Not Resolved]
  - Metastases to lymph nodes [Unknown]
  - Axillary lymphadenectomy [Recovered/Resolved]

NARRATIVE: CASE EVENT DATE: 201605
